FAERS Safety Report 17706818 (Version 1)
Quarter: 2020Q2

REPORT INFORMATION
  Report Type: Report from Study
  Country: None (occurrence: CA)
  Receive Date: 20200424
  Receipt Date: 20200424
  Transmission Date: 20200714
  Serious: Yes (Death, Other)
  Sender: FDA-Public Use
  Company Number: CA-HLS-202000036

PATIENT
  Age: 66 Year
  Sex: Female

DRUGS (1)
  1. CLOZARIL [Suspect]
     Active Substance: CLOZAPINE
     Route: 048
     Dates: start: 19930729

REACTIONS (4)
  - Gait inability [Unknown]
  - Death [Fatal]
  - Lung neoplasm malignant [Unknown]
  - Metastases to spinal cord [Unknown]

NARRATIVE: CASE EVENT DATE: 20200422
